FAERS Safety Report 9785121 (Version 1)
Quarter: 2013Q4

REPORT INFORMATION
  Report Type: Report from Study
  Country: GB (occurrence: GB)
  Receive Date: 20131227
  Receipt Date: 20131227
  Transmission Date: 20140711
  Serious: Yes (Hospitalization, Other)
  Sender: FDA-Public Use
  Company Number: GB-ROCHE-1326674

PATIENT
  Age: 75 Year
  Sex: Female

DRUGS (1)
  1. RANIBIZUMAB [Suspect]
     Indication: AGE-RELATED MACULAR DEGENERATION
     Dosage: MOST RECENT DOSE ON 09/OCT/2013.
     Route: 050
     Dates: start: 20110819

REACTIONS (2)
  - Convulsion [Not Recovered/Not Resolved]
  - Central nervous system infection [Unknown]
